FAERS Safety Report 15085179 (Version 2)
Quarter: 2018Q3

REPORT INFORMATION
  Report Type: Report from Study
  Country: US (occurrence: US)
  Receive Date: 20180628
  Receipt Date: 20180730
  Transmission Date: 20181010
  Serious: Yes (Other)
  Sender: FDA-Public Use
  Company Number: US-GLAXOSMITHKLINE-US2018GSK113830

PATIENT
  Age: 63 Year
  Sex: Female

DRUGS (3)
  1. HUMIRA [Suspect]
     Active Substance: ADALIMUMAB
     Indication: COLITIS ULCERATIVE
  2. BUPROPION HYDROCHLORIDE. [Suspect]
     Active Substance: BUPROPION HYDROCHLORIDE
     Indication: PRODUCT USED FOR UNKNOWN INDICATION
  3. HUMIRA [Suspect]
     Active Substance: ADALIMUMAB
     Indication: CROHN^S DISEASE
     Dosage: UNK
     Dates: start: 20080819

REACTIONS (24)
  - Respiratory disorder [Unknown]
  - Haemoglobin decreased [Unknown]
  - Weight fluctuation [Unknown]
  - Injection site vesicles [Not Recovered/Not Resolved]
  - Injection site erythema [Not Recovered/Not Resolved]
  - Influenza [Unknown]
  - Intervertebral disc degeneration [Unknown]
  - Dysarthria [Recovered/Resolved]
  - Fatigue [Unknown]
  - Depression [Unknown]
  - Hypoaesthesia [Recovered/Resolved]
  - Injection site warmth [Not Recovered/Not Resolved]
  - Anger [Unknown]
  - Injection site pruritus [Not Recovered/Not Resolved]
  - Gallbladder operation [Unknown]
  - Iron deficiency [Unknown]
  - Dysphemia [Unknown]
  - Anaemia [Unknown]
  - Dyspnoea [Recovering/Resolving]
  - Obesity [Unknown]
  - Frustration tolerance decreased [Unknown]
  - Injection site papule [Not Recovered/Not Resolved]
  - Nerve block [Unknown]
  - Back pain [Unknown]

NARRATIVE: CASE EVENT DATE: 201511
